FAERS Safety Report 25304513 (Version 2)
Quarter: 2025Q2

REPORT INFORMATION
  Report Type: Spontaneous
  Country: US (occurrence: US)
  Receive Date: 20250513
  Receipt Date: 20250613
  Transmission Date: 20250717
  Serious: Yes (Hospitalization)
  Sender: CHIESI
  Company Number: US-CHIESI-2025CHF03129

PATIENT
  Age: 35 Year
  Sex: Female

DRUGS (1)
  1. ELFABRIO [Suspect]
     Active Substance: PEGUNIGALSIDASE ALFA-IWXJ
     Indication: Fabry^s disease
     Dosage: 1 MILLIGRAM/KILOGRAM, QOW
     Route: 065
     Dates: start: 2024

REACTIONS (2)
  - Mental disorder [Unknown]
  - Pain [Recovering/Resolving]

NARRATIVE: CASE EVENT DATE: 20250503
